FAERS Safety Report 15076644 (Version 7)
Quarter: 2019Q2

REPORT INFORMATION
  Report Type: Spontaneous
  Country: FR (occurrence: FR)
  Receive Date: 20180627
  Receipt Date: 20190409
  Transmission Date: 20190711
  Serious: Yes (Death, Hospitalization, Other)
  Sender: FDA-Public Use
  Company Number: FR-TEVA-2018-FR-912787

PATIENT
  Age: 80 Year
  Sex: Female
  Weight: 50 kg

DRUGS (18)
  1. PREDNISONE ARROW [Suspect]
     Active Substance: PREDNISONE
     Route: 048
  2. METHOTREXATE. [Concomitant]
     Active Substance: METHOTREXATE
     Indication: NEOPLASM
     Dosage: IN COMBINATION WITH THREE CYCLES OF IMMUNOGLOBULINS
     Dates: start: 20170801
  3. PARACETAMOL [Suspect]
     Active Substance: ACETAMINOPHEN
     Indication: PAIN
     Dosage: 2 DOSAGE FORMS DAILY;
     Route: 040
     Dates: start: 20170911, end: 20170911
  4. DIGOXINE NATIVELLE [Suspect]
     Active Substance: DIGOXIN
     Indication: ARRHYTHMIA
     Dosage: 1 DOSAGE FORMS DAILY; 0.25
     Route: 040
     Dates: start: 20170911, end: 20170911
  5. DIGOXINE NATIVELLE [Suspect]
     Active Substance: DIGOXIN
     Route: 040
  6. PARACETAMOL [Suspect]
     Active Substance: ACETAMINOPHEN
     Dosage: 500 MG, QD
     Route: 048
  7. CORDARONE [Suspect]
     Active Substance: AMIODARONE HYDROCHLORIDE
     Indication: ARRHYTHMIA
     Dosage: 1 DOSAGE FORMS DAILY; SCORED TABLET
     Route: 040
     Dates: start: 20170911, end: 20170911
  8. LEVOTHYROX NF [Suspect]
     Active Substance: LEVOTHYROXINE SODIUM
     Indication: HYPOTHYROIDISM
     Dosage: 175 MICROGRAM DAILY;
     Route: 040
     Dates: start: 20170911, end: 20170911
  9. LEVOTHYROX NF [Suspect]
     Active Substance: LEVOTHYROXINE SODIUM
     Route: 048
  10. FUROSEMIDE ARROW [Suspect]
     Active Substance: FUROSEMIDE
     Indication: CARDIAC FAILURE
     Dosage: 20 MILLIGRAM DAILY;
     Route: 042
     Dates: start: 20170911, end: 20170911
  11. FUROSEMIDE ARROW [Suspect]
     Active Substance: FUROSEMIDE
     Route: 048
  12. CORDARONE [Suspect]
     Active Substance: AMIODARONE HYDROCHLORIDE
     Indication: PRODUCT USED FOR UNKNOWN INDICATION
     Route: 048
  13. ELIQUIS [Suspect]
     Active Substance: APIXABAN
     Indication: THROMBOSIS PROPHYLAXIS
     Dosage: 1 DOSAGE FORMS DAILY;
     Route: 040
     Dates: start: 20170911, end: 20170911
  14. PREDNISONE ARROW [Suspect]
     Active Substance: PREDNISONE
     Indication: DERMATOMYOSITIS
     Dosage: 45 MILLIGRAM DAILY;
     Route: 040
     Dates: start: 20170911, end: 20170911
  15. CALCIDOSE                          /00944201/ [Suspect]
     Active Substance: CALCIUM CARBONATE\CHOLECALCIFEROL
     Indication: OSTEOPOROSIS PROPHYLAXIS
     Dosage: 1 DOSAGE FORMS DAILY; 1 SACHET
     Route: 040
     Dates: start: 20170911, end: 20170911
  16. CALCIDOSE                          /00944201/ [Suspect]
     Active Substance: CALCIUM CARBONATE\CHOLECALCIFEROL
     Dosage: 1 DOSAGE FORMS DAILY;
     Route: 048
  17. ARIPIPRAZOLE. [Concomitant]
     Active Substance: ARIPIPRAZOLE
     Route: 065
  18. LASIX [Suspect]
     Active Substance: FUROSEMIDE
     Indication: CARDIAC FAILURE

REACTIONS (4)
  - Cardiac arrest [Fatal]
  - Off label use [Unknown]
  - Medication error [Fatal]
  - Incorrect route of product administration [Fatal]

NARRATIVE: CASE EVENT DATE: 20170911
